FAERS Safety Report 16653586 (Version 1)
Quarter: 2019Q3

REPORT INFORMATION
  Report Type: Report from Study
  Country: US (occurrence: US)
  Receive Date: 20190731
  Receipt Date: 20190731
  Transmission Date: 20191004
  Serious: Yes (Death, Other)
  Sender: FDA-Public Use
  Company Number: US-GILEAD-2019-0421107

PATIENT
  Age: 47 Year
  Sex: Female

DRUGS (2)
  1. UPTRAVI [Concomitant]
     Active Substance: SELEXIPAG
  2. AMBRISENTAN [Suspect]
     Active Substance: AMBRISENTAN
     Indication: PRODUCT USED FOR UNKNOWN INDICATION
     Dosage: 10 MG, QD
     Route: 048
     Dates: start: 20111107

REACTIONS (1)
  - Death [Fatal]
